FAERS Safety Report 19695597 (Version 1)
Quarter: 2021Q3

REPORT INFORMATION
  Report Type: Spontaneous
  Country: US (occurrence: US)
  Receive Date: 20210812
  Receipt Date: 20210812
  Transmission Date: 20211014
  Serious: No
  Sender: FDA-Public Use
  Company Number: None

PATIENT
  Sex: Female

DRUGS (2)
  1. KROGER MOISTURIZING LUBRICANT [Suspect]
     Active Substance: CARBOXYMETHYLCELLULOSE SODIUM
     Indication: DRY EYE
  2. CEQUA [Suspect]
     Active Substance: CYCLOSPORINE

REACTIONS (3)
  - Drug ineffective [None]
  - Burning sensation [None]
  - Pain [None]
